FAERS Safety Report 9313302 (Version 1)
Quarter: 2013Q2

REPORT INFORMATION
  Report Type: Spontaneous
  Country: US (occurrence: US)
  Receive Date: 20130528
  Receipt Date: 20130528
  Transmission Date: 20140414
  Serious: No
  Sender: FDA-Public Use
  Company Number: US-ABBOTT-13P-163-1064403-00

PATIENT
  Age: 68 Year
  Sex: Male
  Weight: 89.44 kg

DRUGS (5)
  1. ANDROGEL [Suspect]
     Indication: BLOOD TESTOSTERONE DECREASED
     Route: 061
     Dates: start: 2012, end: 201211
  2. ANDROGEL [Suspect]
     Route: 061
     Dates: start: 201211
  3. UNKNOWN THYROID MEDICATION [Concomitant]
     Indication: HYPOTHYROIDISM
  4. DIOVAN [Concomitant]
     Indication: HYPERTENSION
  5. SIMVASTATIN [Concomitant]
     Indication: BLOOD CHOLESTEROL INCREASED

REACTIONS (4)
  - Blood viscosity increased [Recovered/Resolved]
  - Blood testosterone decreased [Not Recovered/Not Resolved]
  - Drug administered at inappropriate site [Unknown]
  - Drug prescribing error [Unknown]
